FAERS Safety Report 13572460 (Version 2)
Quarter: 2017Q2

REPORT INFORMATION
  Report Type: Report from Study
  Country: TW (occurrence: TW)
  Receive Date: 20170523
  Receipt Date: 20170530
  Transmission Date: 20170830
  Serious: Yes (Death, Life-Threatening, Hospitalization)
  Sender: FDA-Public Use
  Company Number: TW-CELGENEUS-TWN-20170504940

PATIENT
  Age: 76 Year
  Sex: Female
  Weight: 45.5 kg

DRUGS (19)
  1. CHLORPHENIRAMINE. [Concomitant]
     Active Substance: CHLORPHENIRAMINE
     Indication: PRODUCT USED FOR UNKNOWN INDICATION
     Route: 065
     Dates: start: 20170424, end: 20170429
  2. NYSTATIN. [Concomitant]
     Active Substance: NYSTATIN
     Indication: PRODUCT USED FOR UNKNOWN INDICATION
     Route: 065
     Dates: start: 20170411, end: 20170507
  3. DIMETHICONE. [Concomitant]
     Active Substance: DIMETHICONE
     Indication: PRODUCT USED FOR UNKNOWN INDICATION
     Route: 065
     Dates: start: 20170404, end: 20170507
  4. FUROSEMIDE. [Concomitant]
     Active Substance: FUROSEMIDE
     Indication: PRODUCT USED FOR UNKNOWN INDICATION
     Route: 065
     Dates: start: 20170329, end: 20170425
  5. POTASSIUM GLUCONATE [Concomitant]
     Active Substance: POTASSIUM GLUCONATE
     Indication: PRODUCT USED FOR UNKNOWN INDICATION
     Route: 065
     Dates: start: 20170419, end: 20170424
  6. AZACITIDINE. [Suspect]
     Active Substance: AZACITIDINE
     Indication: ACUTE MYELOID LEUKAEMIA
     Dosage: 75 MILLIGRAM/SQ. METER
     Route: 058
     Dates: start: 20170414, end: 20170420
  7. TATUMCEF [Concomitant]
     Indication: GINGIVITIS
     Route: 065
     Dates: start: 20170418, end: 20170501
  8. ACETAMINOPHEN. [Concomitant]
     Active Substance: ACETAMINOPHEN
     Indication: PRODUCT USED FOR UNKNOWN INDICATION
     Route: 065
     Dates: start: 20170329, end: 20170507
  9. BENZOYL PEROXIDE. [Concomitant]
     Active Substance: BENZOYL PEROXIDE
     Indication: CARBUNCLE
     Route: 065
     Dates: start: 20170407, end: 20170507
  10. SENNA [Concomitant]
     Active Substance: SENNA LEAF\SENNOSIDES\SENNOSIDES A AND B
     Indication: PRODUCT USED FOR UNKNOWN INDICATION
     Route: 065
     Dates: start: 20170419, end: 20170507
  11. EPINEPHRINE. [Concomitant]
     Active Substance: EPINEPHRINE
     Indication: PRODUCT USED FOR UNKNOWN INDICATION
     Route: 065
     Dates: start: 20170409, end: 20170424
  12. LERCANIDIPINE [Concomitant]
     Active Substance: LERCANIDIPINE
     Indication: PRODUCT USED FOR UNKNOWN INDICATION
     Route: 065
     Dates: start: 20170410, end: 20170507
  13. ALLOPURINOL. [Concomitant]
     Active Substance: ALLOPURINOL
     Indication: PRODUCT USED FOR UNKNOWN INDICATION
     Route: 065
     Dates: start: 20170329, end: 20170428
  14. CHLORHEXIDINE [Concomitant]
     Active Substance: CHLORHEXIDINE
     Indication: PRODUCT USED FOR UNKNOWN INDICATION
     Route: 065
     Dates: start: 20170419, end: 20170507
  15. FLUCONAZOLE. [Concomitant]
     Active Substance: FLUCONAZOLE
     Indication: PRODUCT USED FOR UNKNOWN INDICATION
     Route: 065
     Dates: start: 20170422, end: 20170425
  16. MAGNESIUM OXIDE. [Concomitant]
     Active Substance: MAGNESIUM OXIDE
     Indication: PRODUCT USED FOR UNKNOWN INDICATION
     Route: 065
     Dates: start: 20170423, end: 20170503
  17. TRIAMCINOLONE [Concomitant]
     Active Substance: TRIAMCINOLONE
     Indication: MOUTH ULCERATION
     Route: 065
     Dates: start: 20170407
  18. VADASTUXIMAB TALIRINE [Suspect]
     Active Substance: VADASTUXIMAB TALIRINE
     Indication: ACUTE MYELOID LEUKAEMIA
     Dosage: 10 MICROGRAM/KILOGRAM
     Route: 041
     Dates: start: 20170420, end: 20170420
  19. ALPRAZOLAM. [Concomitant]
     Active Substance: ALPRAZOLAM
     Indication: PRODUCT USED FOR UNKNOWN INDICATION
     Route: 065
     Dates: start: 20170331, end: 20170507

REACTIONS (3)
  - Disseminated intravascular coagulation [Fatal]
  - Pneumonia [Fatal]
  - Acute myeloid leukaemia [Fatal]

NARRATIVE: CASE EVENT DATE: 20170506
